FAERS Safety Report 7275742-3 (Version None)
Quarter: 2011Q1

REPORT INFORMATION
  Report Type: 
  Country: None (occurrence: None)
  Receive Date: 20110124
  Receipt Date: 20110107
  Transmission Date: 20110831
  Serious: Yes (Death, Other)
  Sender: FDA-Public Use
  Company Number: OMX-2011-00001

PATIENT

DRUGS (3)
  1. APPLICATOR [Concomitant]
  2. EVICEL [Suspect]
     Indication: HAEMOSTASIS
     Dosage: EPILESIONAL
  3. HEPARIN [Concomitant]

REACTIONS (7)
  - NAUSEA [None]
  - GRAFT INFECTION [None]
  - HYPOTENSION [None]
  - GRAFT THROMBOSIS [None]
  - CONSTIPATION [None]
  - OEDEMA PERIPHERAL [None]
  - URINARY TRACT INFECTION [None]
